FAERS Safety Report 6944035-3 (Version None)
Quarter: 2010Q3

REPORT INFORMATION
  Report Type: 
  Country: None (occurrence: None)
  Receive Date: 20100827
  Receipt Date: 20100817
  Transmission Date: 20110219
  Serious: Yes (Hospitalization)
  Sender: FDA-Public Use
  Company Number: US-BIOGENIDEC-2010BI011998

PATIENT
  Age: 71 Year
  Sex: Female

DRUGS (3)
  1. AVONEX [Suspect]
     Indication: MULTIPLE SCLEROSIS
     Route: 030
     Dates: start: 20030710, end: 20031001
  2. AVONEX [Suspect]
     Route: 030
     Dates: start: 20031001
  3. UNSPECIFIED MEDICATIONS [Concomitant]
     Indication: MULTIMORBIDITY

REACTIONS (1)
  - CONSTIPATION [None]
